FAERS Safety Report 17629402 (Version 1)
Quarter: 2020Q2

REPORT INFORMATION
  Report Type: Spontaneous
  Country: US (occurrence: US)
  Receive Date: 20200406
  Receipt Date: 20200406
  Transmission Date: 20200713
  Serious: No
  Sender: FDA-Public Use
  Company Number: US-BAYER-2020-055021

PATIENT
  Sex: Male

DRUGS (1)
  1. CLARITIN [Suspect]
     Active Substance: LORATADINE

REACTIONS (3)
  - Drug ineffective [Unknown]
  - Eye pruritus [Unknown]
  - Lacrimation increased [Unknown]
